FAERS Safety Report 13763525 (Version 1)
Quarter: 2017Q3

REPORT INFORMATION
  Report Type: Spontaneous
  Country: IN (occurrence: IN)
  Receive Date: 20170718
  Receipt Date: 20170718
  Transmission Date: 20171127
  Serious: Yes (Death)
  Sender: FDA-Public Use
  Company Number: IN-ASTRAZENECA-2017SE72523

PATIENT
  Age: 55 Year
  Sex: Female

DRUGS (4)
  1. TIROFIBAN [Suspect]
     Active Substance: TIROFIBAN
     Indication: ACUTE CORONARY SYNDROME
     Dosage: 20.0ML UNKNOWN
     Route: 042
  2. TICAGRELOR. [Suspect]
     Active Substance: TICAGRELOR
     Indication: ACUTE CORONARY SYNDROME
     Dosage: 180.0MG UNKNOWN
     Route: 048
     Dates: start: 20170615
  3. ECOSPIRIN [Concomitant]
     Active Substance: ASPIRIN
     Indication: ACUTE CORONARY SYNDROME
     Dosage: 150.0MG UNKNOWN
  4. ATORVASTATIN [Concomitant]
     Active Substance: ATORVASTATIN
     Indication: ACUTE CORONARY SYNDROME
     Dosage: 40.0MG UNKNOWN

REACTIONS (2)
  - Peritoneal haemorrhage [Fatal]
  - Upper gastrointestinal haemorrhage [Fatal]
